FAERS Safety Report 21537406 (Version 1)
Quarter: 2022Q4

REPORT INFORMATION
  Report Type: Report from Study
  Country: IT (occurrence: IT)
  Receive Date: 20221101
  Receipt Date: 20221101
  Transmission Date: 20230113
  Serious: Yes (Hospitalization)
  Sender: FDA-Public Use
  Company Number: None

PATIENT
  Age: 59 Year
  Sex: Female

DRUGS (10)
  1. PAXLOVID [Suspect]
     Active Substance: NIRMATRELVIR\RITONAVIR
     Dosage: 250 MG (150MG + 100MG)
     Route: 048
     Dates: start: 20220322, end: 20220326
  2. ATORVASTATIN [Concomitant]
     Active Substance: ATORVASTATIN
  3. ATENOLOL [Concomitant]
     Active Substance: ATENOLOL
  4. CITALOPRAM [Concomitant]
     Active Substance: CITALOPRAM HYDROBROMIDE
  5. LINAGLIPTIN [Concomitant]
     Active Substance: LINAGLIPTIN
  6. PREGABALIN [Concomitant]
     Active Substance: PREGABALIN
  7. TACROLIMUS [Concomitant]
     Active Substance: TACROLIMUS
  8. OMEPRAZOLE [Concomitant]
     Active Substance: OMEPRAZOLE
  9. MYCOPHENOLATE MOFETIL [Concomitant]
     Active Substance: MYCOPHENOLATE MOFETIL
  10. MEDROL [Concomitant]
     Active Substance: METHYLPREDNISOLONE

REACTIONS (2)
  - Leukocytosis [Unknown]
  - Blood creatinine increased [Unknown]

NARRATIVE: CASE EVENT DATE: 20220330
